FAERS Safety Report 8872283 (Version 2)
Quarter: 2013Q1

REPORT INFORMATION
  Report Type: Spontaneous
  Country: US (occurrence: US)
  Receive Date: 20121026
  Receipt Date: 20130102
  Transmission Date: 20140127
  Serious: No
  Sender: FDA-Public Use
  Company Number: US-AMGEN-USASP2012049235

PATIENT
  Age: 37 Year
  Sex: Female
  Weight: 55.78 kg

DRUGS (1)
  1. ENBREL [Suspect]
     Indication: RHEUMATOID ARTHRITIS
     Dosage: 50 MG, QWK
     Route: 058
     Dates: start: 20120704, end: 20120803

REACTIONS (7)
  - Skin reaction [Unknown]
  - Induration [Unknown]
  - Feeling hot [Unknown]
  - Rash erythematous [Recovered/Resolved]
  - Hypersensitivity [Recovered/Resolved]
  - Injection site reaction [Unknown]
  - Injection site rash [Recovered/Resolved]
